FAERS Safety Report 15007130 (Version 1)
Quarter: 2018Q2

REPORT INFORMATION
  Report Type: Spontaneous
  Country: US (occurrence: US)
  Receive Date: 20180613
  Receipt Date: 20180613
  Transmission Date: 20180711
  Serious: No
  Sender: FDA-Public Use
  Company Number: US-PFIZER INC-2018237892

PATIENT
  Age: 60 Year
  Sex: Female
  Weight: 44.44 kg

DRUGS (4)
  1. FOLIC ACID. [Concomitant]
     Active Substance: FOLIC ACID
     Dosage: 1000 MG, 1X/DAY, (1000 MG, 1 PILL PER DAY)
  2. METHOTREXATE. [Concomitant]
     Active Substance: METHOTREXATE
     Dosage: 4 DF, WEEKLY, [4 PILLS BY MOUTH ONCE PER WEEK]
     Route: 048
  3. LEUCOVORIN. [Concomitant]
     Active Substance: LEUCOVORIN
     Dosage: 1 DF, WEEKLY, [1 PILL BY MOUTH 8 HOURS AFTER TAKING METHOTREXATE 1 TIME PER WEEK]
     Route: 048
  4. XELJANZ [Suspect]
     Active Substance: TOFACITINIB CITRATE
     Indication: RHEUMATOID ARTHRITIS
     Dosage: 5 MG, 2X/DAY
     Route: 048

REACTIONS (3)
  - Sinus disorder [Recovering/Resolving]
  - Cough [Unknown]
  - Aphonia [Recovering/Resolving]

NARRATIVE: CASE EVENT DATE: 201806
